FAERS Safety Report 13012464 (Version 1)
Quarter: 2016Q4

REPORT INFORMATION
  Report Type: Spontaneous
  Country: CA (occurrence: CA)
  Receive Date: 20161209
  Receipt Date: 20161209
  Transmission Date: 20170207
  Serious: Yes (Other)
  Sender: FDA-Public Use
  Company Number: CA-ASTELLAS-2016US046423

PATIENT
  Age: 56 Year
  Sex: Male

DRUGS (3)
  1. AMBISOME [Suspect]
     Active Substance: AMPHOTERICIN B
     Route: 042
  2. AMBISOME [Suspect]
     Active Substance: AMPHOTERICIN B
     Route: 042
     Dates: start: 20160408, end: 20160804
  3. AMBISOME [Suspect]
     Active Substance: AMPHOTERICIN B
     Indication: MUCORMYCOSIS
     Route: 042
     Dates: start: 20160319, end: 20160407

REACTIONS (6)
  - Intentional overdose [Unknown]
  - Jejunostomy [Unknown]
  - Dialysis [Unknown]
  - Off label use [Unknown]
  - Drug ineffective [Unknown]
  - Renal impairment [Unknown]
